FAERS Safety Report 6357569-X (Version None)
Quarter: 2009Q3

REPORT INFORMATION
  Report Type: 
  Country: None (occurrence: None)
  Receive Date: 20090916
  Receipt Date: 20090907
  Transmission Date: 20100115
  Serious: Yes (Other)
  Sender: FDA-Public Use
  Company Number: PHHY2009AU31982

PATIENT
  Sex: Female

DRUGS (5)
  1. CLOZARIL [Suspect]
     Indication: SCHIZOPHRENIA
     Dosage: 275 MG, UNK
     Dates: start: 19961112, end: 20090713
  2. PROPRANOLOL [Concomitant]
     Indication: MIGRAINE
     Dosage: 60 MG, BID
     Route: 048
     Dates: start: 20080827
  3. MEGALOL [Concomitant]
     Indication: MIGRAINE
     Dosage: 5 MG MANE
     Dates: start: 20080827
  4. OSTELIN [Concomitant]
     Indication: MIGRAINE
     Dosage: 1000 MG MANE
     Route: 048
     Dates: start: 20080827
  5. REGULAR LAXATIVE [Concomitant]
     Indication: MIGRAINE
     Dosage: UNK
     Dates: start: 20080827

REACTIONS (2)
  - EXTRAPYRAMIDAL DISORDER [None]
  - PARKINSONISM [None]
